FAERS Safety Report 25358776 (Version 5)
Quarter: 2025Q3

REPORT INFORMATION
  Report Type: Spontaneous
  Country: US (occurrence: US)
  Receive Date: 20250526
  Receipt Date: 20250911
  Transmission Date: 20251020
  Serious: No
  Sender: KARYOPHARM THERAPEUTICS
  Company Number: US-KARYOPHARM-2025KPT100314

PATIENT

DRUGS (12)
  1. SELINEXOR [Suspect]
     Active Substance: SELINEXOR
     Indication: Plasma cell myeloma recurrent
     Route: 048
     Dates: start: 20250520, end: 20250527
  2. SELINEXOR [Suspect]
     Active Substance: SELINEXOR
     Dates: start: 20250603
  3. ACYCLOVIR [Concomitant]
     Active Substance: ACYCLOVIR
  4. ASPIRIN [Concomitant]
     Active Substance: ASPIRIN
  5. DEXAMETHASONE [Concomitant]
     Active Substance: DEXAMETHASONE
  6. ACETAMINOPHEN\HYDROCODONE [Concomitant]
     Active Substance: ACETAMINOPHEN\HYDROCODONE
  7. LEVOTHYROXINE [Concomitant]
     Active Substance: LEVOTHYROXINE
  8. ONDANSETRON [Concomitant]
     Active Substance: ONDANSETRON
  9. POMALYST [Concomitant]
     Active Substance: POMALIDOMIDE
  10. PREDNISONE [Concomitant]
     Active Substance: PREDNISONE
  11. OMEPRAZOLE [Concomitant]
     Active Substance: OMEPRAZOLE
  12. THALOMID [Concomitant]
     Active Substance: THALIDOMIDE

REACTIONS (5)
  - Confusional state [Not Recovered/Not Resolved]
  - Fatigue [Not Recovered/Not Resolved]
  - Nausea [Unknown]
  - Epistaxis [Unknown]
  - Underdose [Unknown]

NARRATIVE: CASE EVENT DATE: 20250101
